FAERS Safety Report 11057923 (Version 2)
Quarter: 2018Q1

REPORT INFORMATION
  Report Type: Report from Study
  Country: US (occurrence: US)
  Receive Date: 20150423
  Receipt Date: 20180328
  Transmission Date: 20180508
  Serious: Yes (Hospitalization, Other)
  Sender: FDA-Public Use
  Company Number: US-ROCHE-1565147

PATIENT
  Age: 7 Year
  Sex: Female
  Weight: 20.05 kg

DRUGS (43)
  1. CELLCEPT [Suspect]
     Active Substance: MYCOPHENOLATE MOFETIL\MYCOPHENOLATE MOFETIL HYDROCHLORIDE
     Dosage: 200 MG/ML; TAKE 0.8 ML
     Route: 048
  2. CEFTRIAXONE. [Concomitant]
     Active Substance: CEFTRIAXONE
  3. ORAPRED [Concomitant]
     Active Substance: PREDNISOLONE SODIUM PHOSPHATE
     Dosage: TAKE 0.5 ML
     Route: 048
     Dates: start: 20160308
  4. DIURIL (UNITED STATES) [Concomitant]
     Route: 048
     Dates: start: 20141106
  5. DITROPAN [Concomitant]
     Active Substance: OXYBUTYNIN CHLORIDE
     Dosage: TAKE 4.1 ML
     Route: 048
     Dates: start: 20160308
  6. PRELONE [Concomitant]
     Active Substance: PREDNISOLONE
     Dosage: 15 MG/5 ML
     Route: 048
     Dates: start: 20141219, end: 20150404
  7. ZITHROMAX [Concomitant]
     Active Substance: AZITHROMYCIN DIHYDRATE
     Dosage: 200MG/5ML; 5ML ON DAY 1 AND 2.5ML ONCE DAILY FOR 4 DAYS
     Route: 065
  8. HIBICLENS [Concomitant]
     Active Substance: CHLORHEXIDINE GLUCONATE
     Dosage: AS NEEDED, USE AS BODY WASH TWICE WEEKLY
     Route: 061
  9. CELLCEPT [Suspect]
     Active Substance: MYCOPHENOLATE MOFETIL\MYCOPHENOLATE MOFETIL HYDROCHLORIDE
     Indication: TRANSPLANT
     Dosage: 160 MG/ML
     Route: 048
  10. NUTROPIN AQ [Suspect]
     Active Substance: SOMATROPIN
     Indication: BODY HEIGHT BELOW NORMAL
     Dosage: 7 INJECTION/WEEK
     Route: 058
  11. ORAPRED [Concomitant]
     Active Substance: PREDNISOLONE SODIUM PHOSPHATE
     Route: 065
     Dates: start: 20140727
  12. COLACE [Concomitant]
     Active Substance: DOCUSATE SODIUM
     Route: 065
  13. DELSYM [Concomitant]
     Active Substance: DEXTROMETHORPHAN
     Dosage: 30MG/5ML; TAKE 60MG
     Route: 048
  14. ZOLOFT [Concomitant]
     Active Substance: SERTRALINE HYDROCHLORIDE
     Dosage: 20MG/ML; TAKE 0.6ML
     Route: 048
  15. XYLOCAINE [Concomitant]
     Active Substance: LIDOCAINE HYDROCHLORIDE
     Dosage: INSERT 20ML INTO URETHRA
     Route: 061
  16. PROGRAF [Concomitant]
     Active Substance: TACROLIMUS\TACROLIMUS ANHYDROUS
     Dosage: 1 MG/ML TWO TIMES DAILY 8 AM AND 8 PM, TAKE 2 ML
     Route: 048
     Dates: start: 20160308
  17. FERROUS SULFATE. [Concomitant]
     Active Substance: FERROUS SULFATE
     Dosage: TAKE 2ML
     Route: 048
     Dates: start: 20160308
  18. BACTROBAN [Concomitant]
     Active Substance: MUPIROCIN\MUPIROCIN CALCIUM
     Dosage: APPLY TOPICALLY TWO ON 10/MAR/2015 TWICE DAILY UNTIL CLEAR.
     Route: 061
     Dates: start: 20150310
  19. HEPARIN [Concomitant]
     Active Substance: HEPARIN SODIUM
     Dosage: HEPARIN
     Route: 065
  20. PROGRAF [Concomitant]
     Active Substance: TACROLIMUS\TACROLIMUS ANHYDROUS
     Dosage: 1 MG/ML TWO TIMES DAILY 8 AM AND 8 PM, TAKE 2 ML
     Route: 048
     Dates: start: 20141016
  21. FURADANTIN [Concomitant]
     Active Substance: NITROFURANTOIN
     Dosage: 25MG/ML DAILY.
     Route: 048
  22. MIRALAX [Concomitant]
     Active Substance: POLYETHYLENE GLYCOL 3350
     Dosage: 17 GRAMS/DOSE 1 PACKET DAILY.
     Route: 065
  23. AUGMENTIN [Concomitant]
     Active Substance: AMOXICILLIN\CLAVULANATE POTASSIUM
     Dosage: 250-62.5MG/5ML; TAKE 4ML
     Route: 048
  24. CIPRO [Concomitant]
     Active Substance: CIPROFLOXACIN HYDROCHLORIDE
     Dosage: 250MG/5ML; TAKE 2.5ML
     Route: 048
  25. NUTROPIN AQ [Suspect]
     Active Substance: SOMATROPIN
     Indication: CHRONIC KIDNEY DISEASE
     Route: 058
  26. PROGRAF [Concomitant]
     Active Substance: TACROLIMUS\TACROLIMUS ANHYDROUS
     Route: 048
  27. TYLENOL [Concomitant]
     Active Substance: ACETAMINOPHEN
     Indication: DISCOMFORT
     Dosage: (160 MG/5 ML)
     Route: 048
  28. VISTIDE [Concomitant]
     Active Substance: CIDOFOVIR
     Dosage: AS REQUIRED
     Route: 061
     Dates: end: 20150213
  29. FERROUS SULFATE. [Concomitant]
     Active Substance: FERROUS SULFATE
     Dosage: TAKE 2ML
     Route: 048
     Dates: start: 20140603
  30. NORFLURANE [Concomitant]
     Dosage: AS NEEDED; 1 SPRAY
     Route: 061
  31. ROXICODONE [Concomitant]
     Active Substance: OXYCODONE HYDROCHLORIDE
     Dosage: 5MG/5ML; TAKE 1 ML AS NEEDED FOR PAIN
     Route: 048
  32. DITROPAN [Concomitant]
     Active Substance: OXYBUTYNIN CHLORIDE
     Dosage: AS NEEDED
     Route: 048
     Dates: start: 20140727, end: 20140826
  33. VALCYTE [Concomitant]
     Active Substance: VALGANCICLOVIR HYDROCHLORIDE
     Dosage: 50 MG/ML
     Route: 048
     Dates: start: 20150203
  34. ATIVAN [Concomitant]
     Active Substance: LORAZEPAM
     Indication: ANXIETY
     Dosage: 2MG/ML; TAKE 0.125ML AS NEEDED
     Route: 048
  35. CELLCEPT [Suspect]
     Active Substance: MYCOPHENOLATE MOFETIL\MYCOPHENOLATE MOFETIL HYDROCHLORIDE
     Dosage: 200 MG/ML; TAKE 0.75 ML
     Route: 048
  36. TYLENOL [Concomitant]
     Active Substance: ACETAMINOPHEN
     Indication: PYREXIA
     Dosage: (160 MG/5 ML) WHEN REQUIRED
     Route: 048
  37. GLYCOLAX [Concomitant]
     Active Substance: POLYETHYLENE GLYCOL 3350
     Dosage: 17 GRAMS/DOSE USE AS DIRECTED
     Route: 065
     Dates: start: 20150215
  38. MACROBID (UNITED STATES) [Concomitant]
     Dosage: 100 MG
     Route: 065
  39. SULFAMETHOXAZOLE/TRIMETHOPRIM [Concomitant]
     Active Substance: SULFAMETHOXAZOLE\TRIMETHOPRIM
     Dosage: 200-40MG/5ML.
     Route: 065
  40. ZYVOX [Concomitant]
     Active Substance: LINEZOLID
  41. EPOGEN [Concomitant]
     Active Substance: ERYTHROPOIETIN
     Dosage: 10000UNIT/ML; INJECT 0.15ML
     Route: 065
  42. LMX (LIDOCAINE) [Concomitant]
     Route: 061
  43. SODIUM CHLORIDE. [Concomitant]
     Active Substance: SODIUM CHLORIDE
     Dosage: INFUSE 3ML AS NEEDED
     Route: 065

REACTIONS (4)
  - Sepsis [Unknown]
  - Laboratory test abnormal [Unknown]
  - Drug ineffective [Unknown]
  - Urinary tract infection bacterial [Unknown]

NARRATIVE: CASE EVENT DATE: 20150404
